FAERS Safety Report 6713535-3 (Version None)
Quarter: 2010Q2

REPORT INFORMATION
  Report Type: 
  Country: None (occurrence: None)
  Receive Date: 20100506
  Receipt Date: 20100426
  Transmission Date: 20101027
  Serious: Yes (Other)
  Sender: FDA-Public Use
  Company Number: US-SANOFI-AVENTIS-2010SA024619

PATIENT
  Age: 80 Year
  Sex: Female

DRUGS (3)
  1. LANTUS [Suspect]
     Dosage: DOSE:16 UNIT(S)
     Route: 058
     Dates: start: 19980101
  2. OPTICLICK [Suspect]
  3. NOVOLOG [Concomitant]
     Dosage: SLIDING SCALE WITH MEALS

REACTIONS (3)
  - BLINDNESS [None]
  - HIP ARTHROPLASTY [None]
  - MACULAR DEGENERATION [None]
